FAERS Safety Report 5897149-3 (Version None)
Quarter: 2008Q3

REPORT INFORMATION
  Report Type: 
  Country: None (occurrence: None)
  Receive Date: 20080924
  Receipt Date: 20080423
  Transmission Date: 20090109
  Serious: Yes (Other)
  Sender: FDA-Public Use
  Company Number: US-ASTRAZENECA-2008UW08304

PATIENT
  Sex: Female

DRUGS (6)
  1. SEROQUEL [Suspect]
     Indication: INSOMNIA
     Route: 048
     Dates: end: 20080301
  2. SEROQUEL [Suspect]
     Route: 048
     Dates: start: 20050101, end: 20050101
  3. PROZAC [Concomitant]
  4. KLONOPIN [Concomitant]
  5. LAMICTAL [Concomitant]
  6. TRAZODONE HCL [Concomitant]

REACTIONS (7)
  - ALTERED STATE OF CONSCIOUSNESS [None]
  - COMA [None]
  - DIABETES MELLITUS [None]
  - EATING DISORDER [None]
  - FEELING ABNORMAL [None]
  - MENTAL DISORDER [None]
  - PANCREATITIS [None]
